FAERS Safety Report 21948260 (Version 5)
Quarter: 2023Q1

REPORT INFORMATION
  Report Type: Spontaneous
  Country: GB (occurrence: GB)
  Receive Date: 20230203
  Receipt Date: 20230320
  Transmission Date: 20230417
  Serious: Yes (Other)
  Sender: FDA-Public Use
  Company Number: GB-PFIZER INC-PV202300018864

PATIENT
  Age: 92 Year
  Sex: Female

DRUGS (1)
  1. ENBREL [Suspect]
     Active Substance: ETANERCEPT
     Indication: Rheumatoid arthritis
     Dosage: 50 MILLIGRAM, QWK
     Route: 058

REACTIONS (6)
  - Neoplasm malignant [Unknown]
  - Rheumatoid arthritis [Unknown]
  - Device failure [Unknown]
  - Accidental exposure to product [Unknown]
  - Exposure via unknown route [Unknown]
  - Drug dose omission by device [Unknown]
